FAERS Safety Report 17042031 (Version 1)
Quarter: 2019Q4

REPORT INFORMATION
  Report Type: Spontaneous
  Country: FR (occurrence: FR)
  Receive Date: 20191118
  Receipt Date: 20191118
  Transmission Date: 20200122
  Serious: Yes (Hospitalization)
  Sender: FDA-Public Use
  Company Number: FR-VIFOR (INTERNATIONAL) INC.-VIT-2019-12963

PATIENT
  Age: 56 Year
  Sex: Female
  Weight: 50 kg

DRUGS (7)
  1. MIRCERA [Suspect]
     Active Substance: METHOXY POLYETHYLENE GLYCOL-EPOETIN BETA
     Indication: ANAEMIA
     Route: 058
     Dates: end: 20180704
  2. BACTRIM [Concomitant]
     Active Substance: SULFAMETHOXAZOLE\TRIMETHOPRIM
  3. ADVAGRAF [Suspect]
     Active Substance: TACROLIMUS
     Indication: LUNG TRANSPLANT
     Route: 048
  4. SOLUPRED [Concomitant]
  5. RAPAMUNE [Concomitant]
     Active Substance: SIROLIMUS
  6. CITALOPRAM BROMHYDRATE [Concomitant]
  7. INEXIUM [Concomitant]
     Active Substance: ESOMEPRAZOLE

REACTIONS (5)
  - Headache [Recovered/Resolved]
  - Vomiting [Recovered/Resolved]
  - Thrombotic microangiopathy [Recovering/Resolving]
  - Acute kidney injury [Recovered/Resolved with Sequelae]
  - Hypertension [Recovered/Resolved]

NARRATIVE: CASE EVENT DATE: 201806
